FAERS Safety Report 14842290 (Version 6)
Quarter: 2020Q3

REPORT INFORMATION
  Report Type: Report from Study
  Country: CA (occurrence: CA)
  Receive Date: 20180503
  Receipt Date: 20200522
  Transmission Date: 20201104
  Serious: Yes (Hospitalization, Disabling)
  Sender: FDA-Public Use
  Company Number: CA-JNJFOC-20180126741

PATIENT
  Age: 69 Year
  Sex: Male
  Weight: 80.2 kg

DRUGS (21)
  1. DARATUMUMAB [Suspect]
     Active Substance: DARATUMUMAB
     Indication: PLASMA CELL MYELOMA
     Dosage: ON DAYS 1,8,15 AND 22
     Route: 041
     Dates: start: 20171026, end: 20171116
  2. POMALIDOMIDE [Suspect]
     Active Substance: POMALIDOMIDE
     Route: 048
     Dates: start: 20171221, end: 20180111
  3. POMALIDOMIDE [Suspect]
     Active Substance: POMALIDOMIDE
     Dosage: 21/28 DAYS
     Route: 048
     Dates: start: 20180215
  4. DEXAMETHASONE. [Suspect]
     Active Substance: DEXAMETHASONE
     Indication: PLASMA CELL MYELOMA
     Route: 048
     Dates: start: 20171026, end: 20171116
  5. DARATUMUMAB [Suspect]
     Active Substance: DARATUMUMAB
     Dosage: DAYS 1 AND 15
     Route: 041
     Dates: start: 20171221, end: 20180104
  6. DARATUMUMAB [Suspect]
     Active Substance: DARATUMUMAB
     Dosage: DAYS 1, 15
     Route: 041
     Dates: start: 20180215
  7. AMPICILLIN [Concomitant]
     Active Substance: AMPICILLIN
  8. CODEINE PHOSPHATE [Concomitant]
     Active Substance: CODEINE PHOSPHATE
     Indication: PRODUCT USED FOR UNKNOWN INDICATION
     Dosage: 1 TABLESPOON
     Route: 065
  9. DEXAMETHASONE. [Suspect]
     Active Substance: DEXAMETHASONE
     Route: 048
     Dates: start: 20171221, end: 20180111
  10. TYLENOL [Concomitant]
     Active Substance: ACETAMINOPHEN
     Indication: BONE PAIN
     Route: 065
     Dates: start: 201704
  11. SENOKOT [Concomitant]
     Active Substance: SENNOSIDES
     Indication: CONSTIPATION
     Route: 065
     Dates: start: 20180411
  12. GRASTOFIL [Concomitant]
     Active Substance: FILGRASTIM
     Indication: PRODUCT USED FOR UNKNOWN INDICATION
     Route: 065
  13. PREGABALIN. [Concomitant]
     Active Substance: PREGABALIN
     Indication: PERIPHERAL SENSORY NEUROPATHY
     Dosage: 225 MILLIGRAM
     Route: 065
     Dates: start: 2016
  14. TYLENOL WITH CODEINE [Concomitant]
     Active Substance: ACETAMINOPHEN\CODEINE PHOSPHATE
     Indication: BONE PAIN
     Dosage: DOSE: 1 TABLET
     Route: 065
     Dates: start: 2015
  15. DEXAMETHASONE. [Suspect]
     Active Substance: DEXAMETHASONE
     Route: 048
     Dates: start: 20180215
  16. EDOXABAN [Concomitant]
     Active Substance: EDOXABAN TOSYLATE
     Indication: PRODUCT USED FOR UNKNOWN INDICATION
     Route: 065
  17. ACYCLOVIR. [Concomitant]
     Active Substance: ACYCLOVIR
     Indication: INFECTION PROPHYLAXIS
     Route: 048
     Dates: start: 20171025, end: 20180430
  18. POMALIDOMIDE [Suspect]
     Active Substance: POMALIDOMIDE
     Indication: PLASMA CELL MYELOMA
     Route: 048
     Dates: start: 20171026, end: 20171116
  19. STEMETIL [Concomitant]
     Active Substance: PROCHLORPERAZINE
     Indication: NAUSEA
     Dosage: 10 MILLIGRAM
     Route: 065
     Dates: start: 20171026
  20. SLOW K [Concomitant]
     Active Substance: POTASSIUM CHLORIDE
     Indication: HYPOKALAEMIA
     Dosage: 1200 MILLIGRAM
     Route: 065
     Dates: start: 20180131
  21. VITAMIN D NOS [Concomitant]
     Active Substance: VITAMIN D NOS
     Indication: SUPPLEMENTATION THERAPY
     Dosage: 1000 IU (INTERNATIONAL UNIT)
     Route: 065
     Dates: start: 201704

REACTIONS (2)
  - Cerebrovascular accident [Recovered/Resolved with Sequelae]
  - Listeriosis [Recovered/Resolved with Sequelae]

NARRATIVE: CASE EVENT DATE: 20180114
